FAERS Safety Report 8484679-3 (Version None)
Quarter: 2012Q3

REPORT INFORMATION
  Report Type: 
  Country: None (occurrence: None)
  Receive Date: 20120703
  Receipt Date: 20120413
  Transmission Date: 20120928
  Serious: No
  Sender: FDA-Public Use
  Company Number: US-TEVA-333470USA

PATIENT
  Sex: Female
  Weight: 77.18 kg

DRUGS (5)
  1. DILTIAZEM HYDROCHOLORIDE [Concomitant]
     Indication: BLOOD CHOLESTEROL ABNORMAL
     Dosage: 10 MILLIGRAM;
     Route: 048
  2. TROSPIUM CHLORIDE [Concomitant]
     Indication: BLADDER DISORDER
     Dosage: 60 MILLIGRAM;
     Route: 048
  3. TELMISARTAN [Concomitant]
     Indication: BLOOD PRESSURE ABNORMAL
     Dosage: 80 MILLICURIES;
     Route: 048
  4. NUVIGIL [Suspect]
     Indication: FATIGUE
     Dosage: 250 MILLIGRAM;
     Route: 048
     Dates: start: 20110101, end: 20120411
  5. DILTIAZEM HYDROCHOLORIDE [Concomitant]
     Indication: BLOOD PRESSURE ABNORMAL
     Dosage: 360 MILLIGRAM;
     Route: 048

REACTIONS (4)
  - DIZZINESS [None]
  - CYSTITIS [None]
  - ASTHENIA [None]
  - HYPOKINESIA [None]
